FAERS Safety Report 8493095-X (Version None)
Quarter: 2012Q3

REPORT INFORMATION
  Report Type: 
  Country: None (occurrence: None)
  Receive Date: 20120706
  Receipt Date: 20120627
  Transmission Date: 20120928
  Serious: Yes (Hospitalization, Other)
  Sender: FDA-Public Use
  Company Number: US-ACTELION-A-US2003-03908

PATIENT

DRUGS (6)
  1. DIGOXIN [Concomitant]
  2. COUMADIN [Concomitant]
  3. FOLIC ACID [Concomitant]
  4. LASIX [Concomitant]
  5. SPIRONOLACTONE [Concomitant]
  6. TRACLEER [Suspect]
     Indication: PULMONARY HYPERTENSION
     Dosage: UNK
     Route: 048
     Dates: start: 20020101

REACTIONS (9)
  - SYNCOPE [None]
  - OEDEMA [None]
  - LOSS OF CONSCIOUSNESS [None]
  - BURNING SENSATION [None]
  - CARDIAC PACEMAKER INSERTION [None]
  - HEART RATE IRREGULAR [None]
  - NEUROPATHY PERIPHERAL [None]
  - DRUG LEVEL CHANGED [None]
  - PRURITUS GENERALISED [None]
